FAERS Safety Report 20688458 (Version 1)
Quarter: 2022Q2

REPORT INFORMATION
  Report Type: Spontaneous
  Country: US (occurrence: US)
  Receive Date: 20220408
  Receipt Date: 20220408
  Transmission Date: 20220721
  Serious: Yes (Other)
  Sender: FDA-Public Use
  Company Number: US-Covis Pharma GmbH-2022COV00984

PATIENT
  Age: 53 Year
  Sex: Female
  Weight: 68.9 kg

DRUGS (5)
  1. ZANAFLEX [Suspect]
     Active Substance: TIZANIDINE HYDROCHLORIDE
     Indication: Product used for unknown indication
     Route: 048
     Dates: start: 20220226
  2. REMODULIN [Suspect]
     Active Substance: TREPROSTINIL
     Indication: Pulmonary arterial hypertension
     Dosage: ADDITIONAL DOSAGE REGIMENS OF 0.020 UG/KG AND 0.022 UG/KG, CONTINUOUS VIA IV ROUTE WAS ADDED TO IV R
     Route: 041
     Dates: start: 20220125
  3. REMODULIN [Suspect]
     Active Substance: TREPROSTINIL
     Dosage: ADDITIONAL DOSAGE REGIMEN OF 0.028 UG/KG, CONTINUOUS VIA INTRAVENOUS (IV) ROUTE STARTED ON AN UNREPO
     Route: 041
  4. SILDENAFIL CITRATE [Concomitant]
     Active Substance: SILDENAFIL CITRATE
     Indication: Product used for unknown indication
  5. OPSUMIT [Concomitant]
     Active Substance: MACITENTAN
     Indication: Product used for unknown indication

REACTIONS (3)
  - Dyspnoea exertional [Not Recovered/Not Resolved]
  - Cough [Unknown]
  - Wheezing [Unknown]
